FAERS Safety Report 15059714 (Version 1)
Quarter: 2018Q2

REPORT INFORMATION
  Report Type: Spontaneous
  Country: US (occurrence: US)
  Receive Date: 20180625
  Receipt Date: 20180625
  Transmission Date: 20180711
  Serious: No
  Sender: FDA-Public Use
  Company Number: US-SA-2018SA158924

PATIENT
  Age: 72 Year
  Sex: Male

DRUGS (1)
  1. TOUJEO [Suspect]
     Active Substance: INSULIN GLARGINE
     Dosage: 24-26 U, QD

REACTIONS (3)
  - Product use issue [Unknown]
  - Unevaluable event [Unknown]
  - Needle issue [Unknown]
